FAERS Safety Report 5588340-4 (Version None)
Quarter: 2008Q1

REPORT INFORMATION
  Report Type: 
  Country: None (occurrence: None)
  Receive Date: 20080111
  Receipt Date: 20070914
  Transmission Date: 20080703
  Serious: No
  Sender: FDA-Public Use
  Company Number: A0682124A

PATIENT
  Sex: Female

DRUGS (3)
  1. TYKERB [Suspect]
     Dates: start: 20070822
  2. DILANTIN [Concomitant]
  3. XELODA [Concomitant]

REACTIONS (3)
  - EYE SWELLING [None]
  - PRURITUS [None]
  - RASH [None]
